FAERS Safety Report 9035087 (Version 1)
Quarter: 2013Q1

REPORT INFORMATION
  Report Type: Report from Study
  Country: US (occurrence: US)
  Receive Date: 20130129
  Receipt Date: 20130129
  Transmission Date: 20140127
  Serious: No
  Sender: FDA-Public Use
  Company Number: US-ABBOTT-12P-163-0889169-00

PATIENT
  Age: 25 Year
  Sex: Female

DRUGS (7)
  1. HUMIRA 40 MG/0.8 ML PEN [Suspect]
     Indication: COLITIS ULCERATIVE
     Dates: start: 20111006
  2. ASACOL [Concomitant]
     Indication: PRODUCT USED FOR UNKNOWN INDICATION
  3. 6-MP [Concomitant]
     Indication: PRODUCT USED FOR UNKNOWN INDICATION
  4. WELLBUTRIN [Concomitant]
     Indication: DEPRESSION
  5. SEROQUEL [Concomitant]
     Indication: DEPRESSION
  6. MULTIVITAMINS [Concomitant]
     Indication: PRODUCT USED FOR UNKNOWN INDICATION
     Dosage: DAILY
  7. IMPLANON [Concomitant]
     Indication: CONTRACEPTION
     Dosage: IMPLANT IN ARM

REACTIONS (2)
  - Axillary mass [Recovering/Resolving]
  - Axillary pain [Recovering/Resolving]
